FAERS Safety Report 20354350 (Version 1)
Quarter: 2022Q1

REPORT INFORMATION
  Report Type: Report from Study
  Country: CA (occurrence: CA)
  Receive Date: 20220120
  Receipt Date: 20220120
  Transmission Date: 20220423
  Serious: Yes (Other)
  Sender: FDA-Public Use
  Company Number: CA-JNJFOC-20211240102

PATIENT
  Age: 51 Year
  Sex: Female
  Weight: 78 kg

DRUGS (1)
  1. REMICADE [Suspect]
     Active Substance: INFLIXIMAB
     Indication: Crohn^s disease
     Dosage: PATIENT RECEIVED 112ND INFUSION OF 400 MG DOSE AND PARTIAL HARVEY-BRADSHAW COMPLETED.?ON 13-JAN-2022
     Route: 042

REACTIONS (4)
  - Migraine [Unknown]
  - Infusion related reaction [Unknown]
  - Diarrhoea [Unknown]
  - Abdominal pain [Unknown]

NARRATIVE: CASE EVENT DATE: 20210113
